FAERS Safety Report 9465921 (Version 2)
Quarter: 2013Q3

REPORT INFORMATION
  Report Type: Spontaneous
  Country: DK (occurrence: BR)
  Receive Date: 20130820
  Receipt Date: 20130906
  Transmission Date: 20140515
  Serious: No
  Sender: FDA-Public Use
  Company Number: BR-FRI-1000047934

PATIENT
  Sex: Female

DRUGS (5)
  1. LEXAPRO [Suspect]
     Indication: DEPRESSION
     Route: 048
     Dates: end: 20130710
  2. LEXAPRO [Suspect]
     Dosage: 10 MG
     Route: 048
     Dates: start: 20130711, end: 20130719
  3. LEXAPRO [Suspect]
     Dosage: 5 MG
     Route: 048
     Dates: start: 20130720
  4. PRISTIQ [Suspect]
     Indication: DEPRESSION
     Dosage: 25 MG
     Route: 048
     Dates: start: 20130711
  5. SYNTHROID [Concomitant]
     Indication: HYPOTHYROIDISM
     Dosage: 100 MCG
     Route: 048

REACTIONS (1)
  - Drug ineffective [Unknown]
